FAERS Safety Report 7308462-7 (Version None)
Quarter: 2011Q1

REPORT INFORMATION
  Report Type: 
  Country: None (occurrence: None)
  Receive Date: 20110223
  Receipt Date: 20110216
  Transmission Date: 20110831
  Serious: No
  Sender: FDA-Public Use
  Company Number: US-BIOGENIDEC-2011BI006196

PATIENT
  Age: 17 Year
  Sex: Male

DRUGS (1)
  1. AVONEX [Suspect]
     Indication: MULTIPLE SCLEROSIS
     Route: 030
     Dates: start: 20100701

REACTIONS (5)
  - RASH PRURITIC [None]
  - PAIN IN EXTREMITY [None]
  - HYPOAESTHESIA [None]
  - PYREXIA [None]
  - NUCLEAR MAGNETIC RESONANCE IMAGING ABNORMAL [None]
